FAERS Safety Report 4810812-8 (Version None)
Quarter: 2005Q4

REPORT INFORMATION
  Report Type: 
  Country: None (occurrence: None)
  Receive Date: 20051024
  Receipt Date: 20051010
  Transmission Date: 20060501
  Serious: Yes (Other)
  Sender: FDA-Public Use
  Company Number: 2005141145

PATIENT
  Age: 60 Year
  Sex: Female
  Weight: 61.2356 kg

DRUGS (6)
  1. CELEBREX [Suspect]
     Indication: ARTHRALGIA
  2. VITAMINS (VITAMINS) [Concomitant]
  3. PREMPRO [Concomitant]
  4. TIMOPTIC [Concomitant]
  5. MURO 128 (SODIUM CHLORIDE) [Concomitant]
  6. ALL OTHER THERAPEUTIC PRODUCTS (ALL OTHER THERAPEUTIC PRODUCTS) [Concomitant]

REACTIONS (4)
  - DRUG INEFFECTIVE [None]
  - EYE LASER SURGERY [None]
  - OEDEMA PERIPHERAL [None]
  - PAIN IN EXTREMITY [None]
